FAERS Safety Report 5865044-1 (Version None)
Quarter: 2008Q3

REPORT INFORMATION
  Report Type: 
  Country: None (occurrence: None)
  Receive Date: 20080829
  Receipt Date: 20080821
  Transmission Date: 20090109
  Serious: Yes (Other)
  Sender: FDA-Public Use
  Company Number: A0718753A

PATIENT
  Age: 75 Year
  Sex: Female

DRUGS (3)
  1. AVANDIA [Suspect]
     Dosage: 4MG PER DAY
     Route: 065
     Dates: start: 20000101, end: 20070527
  2. AVANDAMET [Suspect]
     Dates: start: 20000101, end: 20070527
  3. AVANDARYL [Suspect]
     Dates: start: 20000101, end: 20070527

REACTIONS (1)
  - MYOCARDIAL INFARCTION [None]
